FAERS Safety Report 4696661-2 (Version None)
Quarter: 2005Q2

REPORT INFORMATION
  Report Type: 
  Country: None (occurrence: None)
  Receive Date: 20050620
  Receipt Date: 20050310
  Transmission Date: 20051028
  Serious: No
  Sender: FDA-Public Use
  Company Number: US-YAMANOUCHI-YPA20050117

PATIENT
  Age: 41 Year
  Sex: Male

DRUGS (8)
  1. VESICARE [Suspect]
     Indication: HYPERTONIC BLADDER
     Dosage: 5 MG QD PO
     Route: 048
  2. FLOMAX [Concomitant]
  3. REMERON [Concomitant]
  4. LIPITOR [Concomitant]
  5. PREVACID [Concomitant]
  6. LORATADINE [Concomitant]
  7. LISINOPRIL [Concomitant]
  8. METFORMIN [Concomitant]

REACTIONS (1)
  - DRUG INEFFECTIVE [None]
